FAERS Safety Report 6619356-4 (Version None)
Quarter: 2010Q1

REPORT INFORMATION
  Report Type: 
  Country: None (occurrence: None)
  Receive Date: 20100303
  Receipt Date: 20100216
  Transmission Date: 20100710
  Serious: Yes (Hospitalization)
  Sender: FDA-Public Use
  Company Number: 2010AL001084

PATIENT
  Age: 58 Year
  Sex: Female

DRUGS (20)
  1. TEMAZEPAM [Suspect]
     Indication: SLEEP DISORDER
     Dosage: 20 MG;QD;PO
     Route: 048
     Dates: end: 20090815
  2. DIAZEPAM TABLETS US [Suspect]
     Indication: AGITATION
     Dosage: 10 MG;TID; PO
     Route: 048
     Dates: end: 20090815
  3. METHADONE HCL [Concomitant]
  4. MEPERIDINE HCL [Concomitant]
  5. DILTIAZEM HCL [Concomitant]
  6. RAMIPRIL [Concomitant]
  7. DOTHIEPIN HYDROCHLORIDE [Concomitant]
  8. ATORVASTATIN CALCIUM [Concomitant]
  9. RANITIDINE [Concomitant]
  10. METOPROLOL TARTRATE [Concomitant]
  11. INSULIN DETEMIR [Concomitant]
  12. ACTRAPID [Concomitant]
  13. REPAGLINIDE [Concomitant]
  14. METOCLOPRAMIDE [Concomitant]
  15. FUROSEMIDE [Concomitant]
  16. DIXARIT [Concomitant]
  17. GLICLAZIDE [Concomitant]
  18. CETIRIZINE [Concomitant]
  19. AMPICILLIN SODIUM/SULBACTAM SODIUM [Concomitant]
  20. CLOPIDOGREL [Concomitant]

REACTIONS (6)
  - DRUG INTERACTION [None]
  - HEADACHE [None]
  - HYPERTENSION [None]
  - NARCOTIC INTOXICATION [None]
  - RESPIRATORY FAILURE [None]
  - SOMNOLENCE [None]
